FAERS Safety Report 9036373 (Version 1)
Quarter: 2013Q1

REPORT INFORMATION
  Report Type: Spontaneous
  Country: US (occurrence: None)
  Receive Date: 20130123
  Receipt Date: 20130123
  Transmission Date: 20140127
  Serious: Yes (Hospitalization)
  Sender: FDA-Public Use
  Company Number: None

PATIENT
  Age: 49 Year
  Sex: Female
  Weight: 71.7 kg

DRUGS (1)
  1. AMIODARONE [Suspect]
     Indication: ATRIAL FIBRILLATION
     Dates: start: 20130112, end: 20130112

REACTIONS (8)
  - Respiratory arrest [None]
  - Pulse absent [None]
  - Dizziness [None]
  - Paraesthesia [None]
  - Troponin increased [None]
  - Heart rate abnormal [None]
  - No reaction on previous exposure to drug [None]
  - No therapeutic response [None]
